FAERS Safety Report 5154297-3 (Version None)
Quarter: 2006Q4

REPORT INFORMATION
  Report Type: 
  Country: None (occurrence: None)
  Receive Date: 20061120
  Receipt Date: 20060323
  Transmission Date: 20070319
  Serious: Yes (Other)
  Sender: FDA-Public Use
  Company Number: US-SANOFI-SYNTHELABO-A03200601878

PATIENT
  Sex: Female

DRUGS (4)
  1. AMBIEN [Suspect]
     Indication: INSOMNIA
     Route: 048
     Dates: start: 20060113, end: 20060114
  2. ALLEGRA-D 12 HOUR [Concomitant]
     Route: 048
  3. CELEBREX [Concomitant]
     Route: 048
  4. LISINOPRIL AND HYDROCHLOROTHIAZIDE [Concomitant]
     Dosage: 10/12.5 MG QD
     Route: 048

REACTIONS (3)
  - ANGIONEUROTIC OEDEMA [None]
  - DYSPNOEA [None]
  - THROAT TIGHTNESS [None]
